FAERS Safety Report 9971555 (Version 1)
Quarter: 2014Q1

REPORT INFORMATION
  Report Type: Report from Study
  Country: US (occurrence: US)
  Receive Date: 20140306
  Receipt Date: 20140306
  Transmission Date: 20141002
  Serious: No
  Sender: FDA-Public Use
  Company Number: US-ABBVIE-13P-163-1152043-00

PATIENT
  Sex: Female
  Weight: 76.27 kg

DRUGS (15)
  1. HUMIRA [Suspect]
     Indication: CROHN^S DISEASE
     Route: 058
     Dates: start: 2010
  2. SYNTHROID [Concomitant]
     Indication: HYPOTHYROIDISM
  3. BISOPROLOL [Concomitant]
     Indication: PRODUCT USED FOR UNKNOWN INDICATION
  4. NORVASC [Concomitant]
     Indication: HYPERTENSION
  5. FENTANYL [Concomitant]
     Indication: ABDOMINAL PAIN
     Dosage: PATCH
     Route: 062
  6. FENTANYL [Concomitant]
     Indication: CROHN^S DISEASE
  7. LIDODERM [Concomitant]
     Indication: ARTHRITIS
     Route: 061
  8. FENTORA [Concomitant]
     Indication: ABDOMINAL PAIN
  9. FENTORA [Concomitant]
     Indication: CROHN^S DISEASE
  10. EFFEXOR [Concomitant]
     Indication: CROHN^S DISEASE
  11. VITAMIN B 12 [Concomitant]
     Indication: PRODUCT USED FOR UNKNOWN INDICATION
  12. PATANOL [Concomitant]
     Indication: SEASONAL ALLERGY
     Dosage: EYE DROPS
  13. FLONASE [Concomitant]
     Indication: SEASONAL ALLERGY
  14. OMEPRAZOLE [Concomitant]
     Indication: GASTROOESOPHAGEAL REFLUX DISEASE
  15. LORATADINE [Concomitant]
     Indication: SEASONAL ALLERGY

REACTIONS (1)
  - Vomiting [Not Recovered/Not Resolved]
